FAERS Safety Report 21868171 (Version 1)
Quarter: 2023Q1

REPORT INFORMATION
  Report Type: Spontaneous
  Country: GB (occurrence: GB)
  Receive Date: 20230116
  Receipt Date: 20230116
  Transmission Date: 20230417
  Serious: Yes (Life-Threatening, Other)
  Sender: FDA-Public Use
  Company Number: None

PATIENT

DRUGS (12)
  1. PREDNISOLONE [Suspect]
     Active Substance: PREDNISOLONE
     Dosage: 6 DOSAGE FORM, TABLET
  2. AMOXICILLIN [Concomitant]
     Active Substance: AMOXICILLIN
     Dosage: 1 DOSAGE FORM, QD
     Dates: start: 20211216
  3. CARBOCYSTEINE [Concomitant]
     Active Substance: CARBOCYSTEINE
     Dosage: 2 DOSAGE FORM, BID
     Dates: start: 20211216
  4. CETRABEN EMOLLIENT CREAM [Concomitant]
     Dosage: 1 DOSAGE FORM, TID (APPLY)
     Route: 061
     Dates: start: 20221229
  5. DIGOXIN [Concomitant]
     Active Substance: DIGOXIN
     Dosage: 1 DOSAGE FORM, QD
     Dates: start: 20220223
  6. FUROSEMIDE [Concomitant]
     Active Substance: FUROSEMIDE
     Dosage: 1 DOSAGE FORM, QD, EACH MORNING
     Dates: start: 20220201
  7. IRBESARTAN [Concomitant]
     Active Substance: IRBESARTAN
     Dosage: 1 DOSAGE FORM, QD
     Dates: start: 20220223
  8. POLYETHYLENE GLYCOL 3350\POTASSIUM CHLORIDE\SODIUM BICARBONATE\SODIUM [Concomitant]
     Active Substance: POLYETHYLENE GLYCOL 3350\POTASSIUM CHLORIDE\SODIUM BICARBONATE\SODIUM CHLORIDE
     Dosage: 1 DOSAGE FORM, QD
     Dates: start: 20220301
  9. PRAVASTATIN [Concomitant]
     Active Substance: PRAVASTATIN
     Dosage: 1 DOSAGE FORM, QD, AT NIGHT (NOT ACCORD BRAND PLS!!!!!!)
     Dates: start: 20220223
  10. TRELEGY ELLIPTA [Concomitant]
     Active Substance: FLUTICASONE FUROATE\UMECLIDINIUM BROMIDE\VILANTEROL TRIFENATATE
     Dosage: 1 DOSAGE FORM, QD
     Route: 055
     Dates: start: 20211216
  11. VENTOLIN [Concomitant]
     Active Substance: ALBUTEROL SULFATE
     Dosage: 2 DOSAGE FORM, QID
     Route: 055
     Dates: start: 20211216
  12. WARFARIN SODIUM [Concomitant]
     Active Substance: WARFARIN SODIUM
     Dosage: UNK, QD. TAKE DAILY IN ACCORDANCE WITH YELLOW BOOK
     Dates: start: 20220223

REACTIONS (1)
  - Respiratory distress [Recovering/Resolving]
